FAERS Safety Report 7907978-X (Version None)
Quarter: 2011Q4

REPORT INFORMATION
  Report Type: 
  Country: None (occurrence: None)
  Receive Date: 20111110
  Receipt Date: 20111102
  Transmission Date: 20120403
  Serious: Yes (Disabling)
  Sender: FDA-Public Use
  Company Number: AU-MERCK-1111USA00389

PATIENT
  Age: 70 Year

DRUGS (6)
  1. SINEMET [Suspect]
     Indication: PARKINSON'S DISEASE
     Route: 048
     Dates: start: 19960101
  2. SINEMET [Suspect]
     Route: 048
     Dates: start: 20111030, end: 20110101
  3. SINEMET [Suspect]
     Route: 048
     Dates: start: 20110101
  4. SIMVASTATIN [Concomitant]
     Route: 048
  5. PRAMIPEXOLE DIHYDROCHLORIDE [Concomitant]
     Route: 065
  6. MADOPAR [Concomitant]
     Route: 065

REACTIONS (3)
  - SPEECH DISORDER [None]
  - DRUG INEFFECTIVE [None]
  - IMMOBILE [None]
